FAERS Safety Report 10723595 (Version 8)
Quarter: 2015Q3

REPORT INFORMATION
  Report Type: Report from Study
  Country: TH (occurrence: TH)
  Receive Date: 20150120
  Receipt Date: 20150915
  Transmission Date: 20151125
  Serious: Yes (Life-Threatening, Hospitalization)
  Sender: FDA-Public Use
  Company Number: PHHO2015TH001061

PATIENT
  Age: 55 Year
  Sex: Female
  Weight: 49.2 kg

DRUGS (8)
  1. KCL [Concomitant]
     Active Substance: POTASSIUM CHLORIDE
     Dosage: 30 ML, Q3H + III DOSES
     Route: 048
     Dates: start: 20150110, end: 20150110
  2. KCL [Concomitant]
     Active Substance: POTASSIUM CHLORIDE
     Indication: PRODUCT USED FOR UNKNOWN INDICATION
     Dosage: 30 ML, Q3H + III DOSES
     Route: 048
     Dates: start: 20150104, end: 20150104
  3. LDK378 [Suspect]
     Active Substance: CERITINIB
     Indication: NON-SMALL CELL LUNG CANCER
     Dosage: 750 MG, QD
     Route: 048
     Dates: start: 20141117, end: 20141207
  4. LDK378 [Suspect]
     Active Substance: CERITINIB
     Dosage: 450 MG, QD
     Route: 048
     Dates: start: 20150309, end: 20150904
  5. LDK378 [Suspect]
     Active Substance: CERITINIB
     Dosage: 600 MG, QD
     Route: 048
     Dates: start: 20141215, end: 20141231
  6. LDK378 [Suspect]
     Active Substance: CERITINIB
     Dosage: 450 MG, QD
     Route: 048
     Dates: start: 20150120, end: 20150301
  7. KCL + NACL 0.9% [Concomitant]
     Indication: PRODUCT USED FOR UNKNOWN INDICATION
     Dosage: 80 MLHR, TOTAL 4000 ML
     Route: 042
     Dates: start: 20141230, end: 20141231
  8. KCL [Concomitant]
     Active Substance: POTASSIUM CHLORIDE
     Dosage: 30 ML, Q3H + III DOSES
     Route: 048
     Dates: start: 20150108, end: 20150108

REACTIONS (5)
  - Hypokalaemia [Recovered/Resolved]
  - Pneumothorax [Recovered/Resolved with Sequelae]
  - Cardiac failure [Recovered/Resolved]
  - Appendicitis [Recovered/Resolved]
  - Dyspnoea [Unknown]

NARRATIVE: CASE EVENT DATE: 20141230
